FAERS Safety Report 17487065 (Version 1)
Quarter: 2020Q1

REPORT INFORMATION
  Report Type: Spontaneous
  Country: US (occurrence: US)
  Receive Date: 20200220
  Receipt Date: 20200220
  Transmission Date: 20200409
  Serious: Yes (Hospitalization)
  Sender: FDA-Public Use
  Company Number: None

PATIENT
  Age: 35 Year
  Sex: Male
  Weight: 71 kg

DRUGS (3)
  1. IFOSFAMIDE. [Suspect]
     Active Substance: IFOSFAMIDE
     Dates: end: 20200209
  2. CISPLATIN. [Suspect]
     Active Substance: CISPLATIN
     Dates: end: 20200209
  3. TAXOL [Suspect]
     Active Substance: PACLITAXEL
     Dates: end: 20200205

REACTIONS (2)
  - Adverse event [None]
  - Infusion related reaction [None]

NARRATIVE: CASE EVENT DATE: 20200210
